FAERS Safety Report 8305491-1 (Version None)
Quarter: 2012Q2

REPORT INFORMATION
  Report Type: 
  Country: None (occurrence: None)
  Receive Date: 20120423
  Receipt Date: 20120416
  Transmission Date: 20120825
  Serious: Yes (Other)
  Sender: FDA-Public Use
  Company Number: US-GLAXOSMITHKLINE-A0973850A

PATIENT
  Age: 48 Year
  Sex: Male

DRUGS (4)
  1. LAMOTRGINE [Suspect]
     Indication: BIPOLAR DISORDER
     Dosage: 25MG PER DAY
     Route: 048
     Dates: start: 20120321
  2. CLONAZEPAM [Concomitant]
  3. METOPROLOL TARTRATE [Concomitant]
  4. CYMBALTA [Concomitant]

REACTIONS (17)
  - HEADACHE [None]
  - YELLOW SKIN [None]
  - MANIA [None]
  - HOMICIDAL IDEATION [None]
  - URTICARIA [None]
  - ANXIETY [None]
  - OCULAR ICTERUS [None]
  - LOCAL SWELLING [None]
  - DRY SKIN [None]
  - DEPRESSION [None]
  - FATIGUE [None]
  - SOCIAL AVOIDANT BEHAVIOUR [None]
  - STEVENS-JOHNSON SYNDROME [None]
  - AGITATION [None]
  - ANGER [None]
  - RESTLESSNESS [None]
  - PRURITUS [None]
